FAERS Safety Report 26001334 (Version 1)
Quarter: 2025Q4

REPORT INFORMATION
  Report Type: Spontaneous
  Country: AU (occurrence: AU)
  Receive Date: 20251105
  Receipt Date: 20251105
  Transmission Date: 20260117
  Serious: Yes (Other)
  Sender: RANBAXY
  Company Number: AU-SUN PHARMACEUTICAL INDUSTRIES INC-2025R1-534711

PATIENT
  Age: 49 Year
  Sex: Male
  Weight: 89.5 kg

DRUGS (12)
  1. DOXORUBICIN [Suspect]
     Active Substance: DOXORUBICIN
     Indication: Non-Hodgkin^s lymphoma
     Dosage: 104 MILLIGRAM
     Route: 042
     Dates: start: 20231115
  2. CYCLOPHOSPHAMIDE [Suspect]
     Active Substance: CYCLOPHOSPHAMIDE
     Indication: Non-Hodgkin^s lymphoma
     Dosage: 1540 MILLIGRAM
     Route: 042
     Dates: start: 20231115
  3. PREDNISOLONE [Suspect]
     Active Substance: PREDNISOLONE
     Indication: Non-Hodgkin^s lymphoma
     Dosage: 100 MILLIGRAM
     Route: 048
     Dates: start: 20231114
  4. PREDNISOLONE [Suspect]
     Active Substance: PREDNISOLONE
     Dosage: 25 MILLIGRAM
     Route: 048
  5. RITUXIMAB [Suspect]
     Active Substance: RITUXIMAB
     Indication: Non-Hodgkin^s lymphoma
     Dosage: 775 MILLIGRAM
     Route: 042
     Dates: start: 20231114
  6. RITUXIMAB [Suspect]
     Active Substance: RITUXIMAB
     Dosage: UNK
     Route: 042
  7. GLOFITAMAB [Suspect]
     Active Substance: GLOFITAMAB
     Indication: Non-Hodgkin^s lymphoma
     Dosage: UNK
     Route: 042
  8. GLOFITAMAB [Suspect]
     Active Substance: GLOFITAMAB
     Dosage: 30 MILLIGRAM
     Route: 042
  9. GLOFITAMAB [Suspect]
     Active Substance: GLOFITAMAB
     Dosage: 2.5 MILLIGRAM
     Route: 042
     Dates: start: 20231212
  10. POLATUZUMAB VEDOTIN [Suspect]
     Active Substance: POLATUZUMAB VEDOTIN
     Indication: Non-Hodgkin^s lymphoma
     Dosage: 150 MILLIGRAM, EVERY 3 WEEKS
     Route: 042
     Dates: start: 20231114
  11. POLATUZUMAB VEDOTIN [Suspect]
     Active Substance: POLATUZUMAB VEDOTIN
     Dosage: UNK
     Route: 042
  12. VALACYCLOVIR HYDROCHLORIDE [Concomitant]
     Active Substance: VALACYCLOVIR HYDROCHLORIDE
     Indication: Antiviral prophylaxis
     Dosage: 500 MILLIGRAM, QD
     Route: 048
     Dates: start: 20231113

REACTIONS (1)
  - Second primary malignancy [Not Recovered/Not Resolved]

NARRATIVE: CASE EVENT DATE: 20250730
